FAERS Safety Report 15375838 (Version 2)
Quarter: 2018Q4

REPORT INFORMATION
  Report Type: Report from Study
  Country: US (occurrence: US)
  Receive Date: 20180912
  Receipt Date: 20181105
  Transmission Date: 20190204
  Serious: Yes (Death, Hospitalization)
  Sender: FDA-Public Use
  Company Number: US-ACTELION-A-NJ2018-178624

PATIENT
  Age: 34 Year
  Sex: Male
  Weight: 79.37 kg

DRUGS (8)
  1. VITAMIN D [Concomitant]
     Active Substance: CHOLECALCIFEROL
  2. OPSUMIT [Suspect]
     Active Substance: MACITENTAN
     Indication: PULMONARY ARTERIAL HYPERTENSION
     Dosage: 10 MG, QD
     Route: 048
  3. BUMEX [Concomitant]
     Active Substance: BUMETANIDE
  4. POTASSIUM [Concomitant]
     Active Substance: POTASSIUM
  5. ELIQUIS [Concomitant]
     Active Substance: APIXABAN
  6. HYDRALAZINE [Concomitant]
     Active Substance: HYDRALAZINE HYDROCHLORIDE
  7. METHAZONE [Concomitant]
     Active Substance: METHAZOLAMIDE
  8. OXYCODONE [Concomitant]
     Active Substance: OXYCODONE

REACTIONS (6)
  - Cardiogenic shock [Fatal]
  - Product dose omission [Unknown]
  - Respiratory failure [Fatal]
  - Sickle cell anaemia with crisis [Unknown]
  - Dyspnoea [Unknown]
  - Syncope [Unknown]

NARRATIVE: CASE EVENT DATE: 201808
